FAERS Safety Report 9192471 (Version 1)
Quarter: 2013Q1

REPORT INFORMATION
  Report Type: Spontaneous
  Country: US (occurrence: None)
  Receive Date: 20120703
  Receipt Date: 20120703
  Transmission Date: 20140127
  Serious: No
  Sender: FDA-Public Use
  Company Number: PHEH2012US009401

PATIENT
  Age: 42 Year
  Sex: Female
  Weight: 69.4 kg

DRUGS (3)
  1. GILENYA  (FTY)CAPSULE [Suspect]
     Route: 048
  2. SYNTHROID (LEVOTHYROXINE SODIUM) [Concomitant]
  3. VITAMIN D (ERGOCALCIFEROL) [Suspect]

REACTIONS (2)
  - Diplopia [None]
  - Vision blurred [None]
